FAERS Safety Report 8400476-9 (Version None)
Quarter: 2012Q2

REPORT INFORMATION
  Report Type: 
  Country: None (occurrence: None)
  Receive Date: 20120531
  Receipt Date: 20120522
  Transmission Date: 20120825
  Serious: Yes (Hospitalization, Other)
  Sender: FDA-Public Use
  Company Number: BR-ABBOTT-12P-020-0938352-00

PATIENT
  Sex: Female
  Weight: 10 kg

DRUGS (3)
  1. DEPAKOTE [Suspect]
     Indication: SCHINZEL-GIEDION SYNDROME
     Route: 048
  2. CLONAZEPAM [Concomitant]
     Indication: CONVULSION PROPHYLAXIS
     Route: 048
  3. TOPIRAMATE [Concomitant]
     Indication: CONVULSION PROPHYLAXIS
     Route: 048

REACTIONS (2)
  - GASTROSTOMY [None]
  - PNEUMONIA ASPIRATION [None]
